FAERS Safety Report 5032367-8 (Version None)
Quarter: 2006Q2

REPORT INFORMATION
  Report Type: 
  Country: None (occurrence: None)
  Receive Date: 20060508
  Receipt Date: 20060508
  Transmission Date: 20061013
  Serious: Yes (Hospitalization)
  Sender: FDA-Public Use
  Company Number: 232684K05USA

PATIENT
  Age: 59 Year
  Sex: Female
  Weight: 59.8748 kg

DRUGS (9)
  1. REBIF [Suspect]
     Indication: MULTIPLE SCLEROSIS
     Dosage: 8.8 MCG
     Dates: start: 20050624
  2. LORTAB [Suspect]
     Dosage: SEE IMAGE
     Route: 048
  3. AMITRIPTYLINE HCL [Suspect]
     Dosage: 100 MG, 1 IN1 DAYS, ORAL
     Route: 048
  4. CRESTOR [Concomitant]
  5. GABAPENTIN [Concomitant]
  6. NEXIUM [Concomitant]
  7. SOMA [Concomitant]
  8. WELLBUTRIN SR [Concomitant]
  9. ZOLOFT [Concomitant]

REACTIONS (3)
  - DEHYDRATION [None]
  - DIARRHOEA [None]
  - SOMNOLENCE [None]
